FAERS Safety Report 4879708-X (Version None)
Quarter: 2006Q1

REPORT INFORMATION
  Report Type: 
  Country: None (occurrence: None)
  Receive Date: 20060111
  Receipt Date: 20051229
  Transmission Date: 20060701
  Serious: Yes (Other)
  Sender: FDA-Public Use
  Company Number: 2006003505

PATIENT
  Sex: Female

DRUGS (1)
  1. ZELDOX (CAPSULES) (ZIPRASIDONE) [Suspect]
     Indication: ILL-DEFINED DISORDER
     Dosage: 20 MG (20 MG, 1 IN 1 D), ORAL
     Route: 048

REACTIONS (3)
  - AFFECTIVE DISORDER [None]
  - AGITATION [None]
  - SELF MUTILATION [None]
